FAERS Safety Report 25016824 (Version 1)
Quarter: 2025Q1

REPORT INFORMATION
  Report Type: Spontaneous
  Country: US (occurrence: US)
  Receive Date: 20250227
  Receipt Date: 20250227
  Transmission Date: 20250409
  Serious: No
  Sender: UCB
  Company Number: US-UCBSA-2024040535

PATIENT
  Age: 3 Year
  Sex: Female

DRUGS (15)
  1. LEVETIRACETAM [Suspect]
     Active Substance: LEVETIRACETAM
     Indication: Seizure prophylaxis
  2. LEVETIRACETAM [Suspect]
     Active Substance: LEVETIRACETAM
     Indication: Off label use
  3. DEXAMETHASONE [Concomitant]
     Active Substance: DEXAMETHASONE
     Indication: Acute lymphocytic leukaemia
     Dosage: 20 MILLIGRAM/SQ. METER, 4X/DAY (QID), FOR 7 DAYS
  4. VINCRISTINE [Concomitant]
     Active Substance: VINCRISTINE
     Indication: Acute lymphocytic leukaemia
  5. CLINDAMYCIN [Concomitant]
     Active Substance: CLINDAMYCIN
     Indication: Cellulitis
  6. ONDANSETRON [Concomitant]
     Active Substance: ONDANSETRON
     Indication: Cellulitis
  7. CEFEPIME [Concomitant]
     Active Substance: CEFEPIME HYDROCHLORIDE
     Indication: Febrile neutropenia
  8. CEFEPIME [Concomitant]
     Active Substance: CEFEPIME HYDROCHLORIDE
     Indication: Tumour lysis syndrome
  9. VANCOMYCIN [Concomitant]
     Active Substance: VANCOMYCIN
     Indication: Febrile neutropenia
  10. VANCOMYCIN [Concomitant]
     Active Substance: VANCOMYCIN
     Indication: Tumour lysis syndrome
  11. RASBURICASE [Concomitant]
     Active Substance: RASBURICASE
     Indication: Hypervolaemia
  12. ALLOPURINOL [Concomitant]
     Active Substance: ALLOPURINOL
     Indication: Hypervolaemia
  13. HYDROCORTISONE [Concomitant]
     Active Substance: HYDROCORTISONE
     Indication: Chemotherapy
  14. METHOTREXATE [Concomitant]
     Active Substance: METHOTREXATE
     Indication: Chemotherapy
  15. CYTARABINE [Concomitant]
     Active Substance: CYTARABINE
     Indication: Chemotherapy

REACTIONS (1)
  - No adverse event [Unknown]
